FAERS Safety Report 17722066 (Version 1)
Quarter: 2020Q2

REPORT INFORMATION
  Report Type: Spontaneous
  Country: NO (occurrence: NO)
  Receive Date: 20200429
  Receipt Date: 20200429
  Transmission Date: 20200714
  Serious: Yes (Death)
  Sender: FDA-Public Use
  Company Number: NO-009507513-2004NOR006749

PATIENT
  Age: 75 Year
  Sex: Female

DRUGS (7)
  1. METOPROLOL SANDOZ (METOPROLOL TARTRATE) [Concomitant]
     Indication: ATRIAL FIBRILLATION
     Dosage: 200 MG X 1
     Route: 048
  2. LEVAXIN [Concomitant]
     Active Substance: LEVOTHYROXINE SODIUM
     Dosage: 100 MCG 4/7 + 50 MCG 1/7
     Route: 048
  3. KEYTRUDA [Suspect]
     Active Substance: PEMBROLIZUMAB
     Indication: LUNG NEOPLASM MALIGNANT
     Dosage: 200 MG EVER 3RD WEEK
     Route: 042
     Dates: start: 20200127, end: 20200217
  4. BEHEPAN [Concomitant]
     Indication: PROPHYLAXIS
     Dosage: 1 MG X 1
     Route: 048
  5. CARBOPLATIN. [Concomitant]
     Active Substance: CARBOPLATIN
     Indication: LUNG NEOPLASM MALIGNANT
     Dosage: 260 MG IV
     Route: 042
     Dates: start: 20200127, end: 20200214
  6. PEMETREXED DISODIUM [Concomitant]
     Active Substance: PEMETREXED DISODIUM
     Indication: LUNG NEOPLASM MALIGNANT
     Dosage: 550 MG EVERY 3RD WEEK
     Route: 042
     Dates: start: 20200127, end: 20200217
  7. ELIQUIS [Concomitant]
     Active Substance: APIXABAN
     Indication: ATRIAL FIBRILLATION
     Dosage: 5 MG X 2
     Route: 048

REACTIONS (2)
  - Myocarditis [Fatal]
  - Myositis [Fatal]

NARRATIVE: CASE EVENT DATE: 20200303
